FAERS Safety Report 19633761 (Version 3)
Quarter: 2021Q3

REPORT INFORMATION
  Report Type: Report from Study
  Country: IN (occurrence: IN)
  Receive Date: 20210730
  Receipt Date: 20210816
  Transmission Date: 20211014
  Serious: Yes (Life-Threatening, Hospitalization, Other)
  Sender: FDA-Public Use
  Company Number: IN-BRISTOL-MYERS SQUIBB COMPANY-BMS-2021-072785

PATIENT
  Age: 65 Year
  Sex: Male
  Weight: 50 kg

DRUGS (1)
  1. NIVOLUMAB [Suspect]
     Active Substance: NIVOLUMAB
     Indication: SQUAMOUS CELL CARCINOMA OF HEAD AND NECK
     Dosage: 150 MILLIGRAM, Q2WK
     Route: 042
     Dates: start: 20210617

REACTIONS (14)
  - Cough [Recovered/Resolved]
  - Pyrexia [Recovered/Resolved]
  - Disorientation [Unknown]
  - Hyponatraemia [Unknown]
  - Vomiting [Recovered/Resolved]
  - Swelling [Unknown]
  - Dyspnoea [Recovered/Resolved]
  - Fatigue [Unknown]
  - Swollen tongue [Unknown]
  - Stridor [Unknown]
  - Sensory disturbance [Recovered/Resolved]
  - Tongue oedema [Unknown]
  - Confusional state [Unknown]
  - Abscess [Unknown]

NARRATIVE: CASE EVENT DATE: 20210703
